FAERS Safety Report 7376692-4 (Version None)
Quarter: 2011Q1

REPORT INFORMATION
  Report Type: 
  Country: None (occurrence: None)
  Receive Date: 20110325
  Receipt Date: 20110309
  Transmission Date: 20110831
  Serious: Yes (Hospitalization, Other)
  Sender: FDA-Public Use
  Company Number: PHHY2010JP32039

PATIENT
  Sex: Female
  Weight: 58 kg

DRUGS (6)
  1. ZADITEN [Suspect]
     Indication: RHINITIS
     Dosage: UNK
     Dates: start: 20100507, end: 20100511
  2. FOLIAMIN [Concomitant]
     Dosage: UNK
     Dates: start: 20090918, end: 20101227
  3. ALEVIATIN [Concomitant]
     Dosage: 330 MG, UNK
     Route: 048
  4. ALEVIATIN [Concomitant]
     Dosage: 165 MG
     Route: 048
     Dates: start: 20100625
  5. ALEVIATIN [Concomitant]
     Dosage: 162.5 MG TWICE DAILY
     Route: 048
     Dates: start: 20100409
  6. ALEVIATIN [Concomitant]
     Indication: EPILEPSY
     Dosage: 325 MG, UNK
     Route: 048
     Dates: start: 20020101

REACTIONS (5)
  - EPILEPSY [None]
  - BREECH PRESENTATION [None]
  - GESTATIONAL DIABETES [None]
  - DRUG EXPOSURE DURING PREGNANCY [None]
  - CONSTIPATION [None]
